FAERS Safety Report 8761084 (Version 2)
Quarter: 2012Q4

REPORT INFORMATION
  Report Type: 
  Country: US (occurrence: US)
  Receive Date: 20120830
  Receipt Date: 20121003
  Transmission Date: 20130627
  Serious: Yes (Other)
  Sender: FDA-Public Use
  Company Number: US-ASTRAZENECA-2012SE60835

PATIENT
  Age: 62 Year
  Sex: Female

DRUGS (1)
  1. SYMBICORT PMDI [Suspect]
     Dosage: UNKNOWN STRENGTH AND FREQUENCY
     Route: 055

REACTIONS (2)
  - Cataract [Unknown]
  - Drug dose omission [Unknown]
